FAERS Safety Report 6534637-0 (Version None)
Quarter: 2010Q1

REPORT INFORMATION
  Report Type: 
  Country: None (occurrence: None)
  Receive Date: 20100112
  Receipt Date: 20100106
  Transmission Date: 20100710
  Serious: Yes (Other)
  Sender: FDA-Public Use
  Company Number: B0619711A

PATIENT
  Age: 16 Year
  Sex: Male

DRUGS (1)
  1. NICORETTE [Suspect]
     Indication: SMOKING CESSATION THERAPY
     Dosage: 25MG PER DAY
     Route: 062
     Dates: start: 20091202, end: 20091202

REACTIONS (9)
  - ADVERSE EVENT [None]
  - ANGER [None]
  - APPLICATION SITE BURN [None]
  - APPLICATION SITE ERYTHEMA [None]
  - APPLICATION SITE IRRITATION [None]
  - APPLICATION SITE REACTION [None]
  - APPLICATION SITE SCAB [None]
  - APPLICATION SITE VESICLES [None]
  - BLISTER [None]
